FAERS Safety Report 7893401-0 (Version None)
Quarter: 2011Q4

REPORT INFORMATION
  Report Type: 
  Country: None (occurrence: None)
  Receive Date: 20111104
  Receipt Date: 20110920
  Transmission Date: 20120403
  Serious: Yes (Hospitalization)
  Sender: FDA-Public Use
  Company Number: US-AMGEN-USACT2011038274

PATIENT
  Age: 51 Year
  Sex: Male

DRUGS (7)
  1. BLINDED PLACEBO [Suspect]
     Indication: HYPERPARATHYROIDISM SECONDARY
     Dates: start: 20070620, end: 20090318
  2. CINACALCET HYDROCHLORIDE [Suspect]
     Indication: HYPERPARATHYROIDISM SECONDARY
     Dates: start: 20070620, end: 20090318
  3. RIFAMPIN [Concomitant]
  4. PHOSLO [Concomitant]
     Dosage: UNK
     Dates: start: 20101019
  5. DOXYCYCLINE [Concomitant]
  6. SENSIPAR [Concomitant]
     Dosage: 90 MG, UNK
     Dates: start: 20110630
  7. RENVELA [Concomitant]
     Dosage: UNK
     Dates: start: 20101019

REACTIONS (13)
  - LOWER LIMB FRACTURE [None]
  - ANTIBIOTIC RESISTANT STAPHYLOCOCCUS TEST POSITIVE [None]
  - FALL [None]
  - OSTEOMYELITIS [None]
  - STRESS [None]
  - ACTIVITIES OF DAILY LIVING IMPAIRED [None]
  - ASTHENIA [None]
  - THROMBOCYTOPENIA [None]
  - FOOT AMPUTATION [None]
  - PARAPARESIS [None]
  - PAIN [None]
  - EXTRADURAL ABSCESS [None]
  - LEUKOPENIA [None]
